FAERS Safety Report 8690660 (Version 2)
Quarter: 2013Q1

REPORT INFORMATION
  Report Type: Spontaneous
  Country: US (occurrence: US)
  Receive Date: 20120727
  Receipt Date: 20130128
  Transmission Date: 20140127
  Serious: No
  Sender: FDA-Public Use
  Company Number: US-ASTRAZENECA-2012SE29737

PATIENT
  Age: 39 Year
  Sex: Female
  Weight: 74.8 kg

DRUGS (5)
  1. SEROQUEL XR [Suspect]
     Indication: BIPOLAR DISORDER
     Route: 048
     Dates: start: 2009
  2. KLONOPIN [Concomitant]
  3. METOPROLOL TARTRATE [Concomitant]
  4. ZOLOFT [Concomitant]
  5. LEXAPRO [Concomitant]

REACTIONS (6)
  - Nausea [Unknown]
  - Mood swings [Unknown]
  - Insomnia [Unknown]
  - Panic disorder [Unknown]
  - Feeling abnormal [Unknown]
  - Drug dose omission [Unknown]
